FAERS Safety Report 24529108 (Version 1)
Quarter: 2024Q4

REPORT INFORMATION
  Report Type: Spontaneous
  Country: US (occurrence: None)
  Receive Date: 20241019
  Receipt Date: 20241019
  Transmission Date: 20250115
  Serious: Yes (Hospitalization, Disabling)
  Sender: Public
  Company Number: None

PATIENT
  Age: 22 Year
  Sex: Female

DRUGS (12)
  1. OXBRYTA [Suspect]
     Active Substance: VOXELOTOR
     Indication: Sickle cell disease
     Dosage: OTHER QUANTITY : 1 TABLET(S);?FREQUENCY : DAILY;?
     Route: 048
  2. FOLIC ACID [Concomitant]
  3. FISH OIL [Concomitant]
  4. FLOVENT [Concomitant]
     Active Substance: FLUTICASONE PROPIONATE
  5. Albuterol [Concomitant]
  6. Vitamin D [Concomitant]
  7. Multi-vitamins [Concomitant]
  8. AMITRIPTYLINE [Concomitant]
  9. Ashwagandha [Concomitant]
  10. OXYCODONE [Concomitant]
     Active Substance: OXYCODONE
  11. FENUGREEK SEED [Concomitant]
     Active Substance: FENUGREEK SEED
  12. liquid chlorophyll [Concomitant]

REACTIONS (3)
  - Sickle cell anaemia with crisis [None]
  - Pain in extremity [None]
  - Gait disturbance [None]

NARRATIVE: CASE EVENT DATE: 20240719
